FAERS Safety Report 17568647 (Version 1)
Quarter: 2020Q1

REPORT INFORMATION
  Report Type: Spontaneous
  Country: CN (occurrence: CN)
  Receive Date: 20200320
  Receipt Date: 20200320
  Transmission Date: 20200409
  Serious: Yes (Other)
  Sender: FDA-Public Use
  Company Number: CN-BAXTER-2020BAX006045

PATIENT
  Age: 11 Year
  Sex: Male
  Weight: 30.2 kg

DRUGS (29)
  1. ENDOXAN [Suspect]
     Active Substance: CYCLOPHOSPHAMIDE
     Dosage: ABVD-PC REGIMEN 6TH COURSE, CYCLOPHOSPHAMIDE INJECTION + 0.9% NS INJECTION 100 ML, DAY 1-2
     Route: 041
     Dates: start: 20200123, end: 20200124
  2. BLEOMYCIN HYDROCHLORIDE [Suspect]
     Active Substance: BLEOMYCIN HYDROCHLORIDE
     Indication: HODGKIN^S DISEASE
     Dosage: ABVD-PC REGIMEN 1ST TO 5TH COURSE, BLEOMYCIN HYDROCHLORIDE INJECTION + 0.9% NS INJECTION
     Route: 030
  3. VINCRISTINE SULFATE. [Suspect]
     Active Substance: VINCRISTINE SULFATE
     Indication: HODGKIN^S DISEASE
     Dosage: ABVD-PC REGIMEN 1ST TO 5TH COURSE, VINCRISTINE SULFATE INJECTION + 0.9% NS
     Route: 042
  4. BLEOMYCIN HYDROCHLORIDE [Suspect]
     Active Substance: BLEOMYCIN HYDROCHLORIDE
     Dosage: DOSE:15000 U, ABVD-PC 6TH REGIMEN, BLEOMYCIN HYDROCHLORIDE INJECTION+0.9% NS INJECTION 10 ML, DAY 1
     Route: 030
     Dates: start: 20200122, end: 20200122
  5. VINCRISTINE SULFATE. [Suspect]
     Active Substance: VINCRISTINE SULFATE
     Dosage: ABVD-PC REGIMEN 6TH COURSE, DAY 1, VINCRISTINE SULFATE INJECTION + 0.9% NS 10 ML
     Route: 042
     Dates: start: 20200122, end: 20200122
  6. 0.9% SODIUM CHLORIDE INJECTION [Suspect]
     Active Substance: SODIUM CHLORIDE
     Indication: MEDICATION DILUTION
     Dosage: ABVD-PC REGIMEN 1ST TO 5TH COURSE, VINCRISTINE SULFATE INJECTION + 0.9% NS
     Route: 042
  7. ETOPOSIDE. [Suspect]
     Active Substance: ETOPOSIDE
     Indication: HODGKIN^S DISEASE
     Dosage: ABVD-PC REGIMEN 1ST TO 5TH COURSE, ETOPOSIDE INJECTION + 0.9% NS INJECTION
     Route: 041
  8. PIRARUBICIN HYDROCHLORIDE [Suspect]
     Active Substance: PIRARUBICIN HYDROCHLORIDE
     Indication: HODGKIN^S DISEASE
     Dosage: ABVD-PC REGIMEN 1ST TO 5TH COURSE, PIRARUBICIN HYDROCHLORIDE INJECTION + 5% GS INJECTION
     Route: 041
  9. ETOPOSIDE. [Suspect]
     Active Substance: ETOPOSIDE
     Dosage: ABVD-PC REGIMEN 6TH COURSE, ETOPOSIDE INJECTION + 0.9% NS INJECTION 500 ML, DAY 1-3
     Route: 041
     Dates: start: 20200123, end: 20200125
  10. BLEOMYCIN HYDROCHLORIDE [Suspect]
     Active Substance: BLEOMYCIN HYDROCHLORIDE
     Dosage: DOSE: 15000 U, ABVD-PC 6TH REGIMEN, BLEOMYCIN HYDROCHLORIDE INJECTION+0.9% NS INJECTION 10 ML, DAY 8
     Route: 030
     Dates: start: 20200129, end: 20200129
  11. SODIUM CHLORIDE. [Suspect]
     Active Substance: SODIUM CHLORIDE
     Dosage: ABVD-PC REGIMEN 1ST TO 5TH COURSE, ETOPOSIDE INJECTION + 0.9% NS INJECTION
     Route: 041
  12. SODIUM CHLORIDE. [Suspect]
     Active Substance: SODIUM CHLORIDE
     Dosage: ABVD-PC REGIMEN 6TH COURSE, ETOPOSIDE INJECTION 0.03 G + 0.9% NS INJECTION, DAY 1-3
     Route: 041
     Dates: start: 20200123, end: 20200125
  13. GLUCOSE [Suspect]
     Active Substance: DEXTROSE
     Indication: MEDICATION DILUTION
     Dosage: ABVD-PC REGIMEN 1ST TO 5TH COURSE, PIRARUBICIN HYDROCHLORIDE INJECTION + 5% GS INJECTION
     Route: 041
  14. ENDOXAN [Suspect]
     Active Substance: CYCLOPHOSPHAMIDE
     Indication: HODGKIN^S DISEASE
     Dosage: ABVD-PC REGIMEN 1ST TO 5TH COURSE, CYCLOPHOSPHAMIDE INJECTION + 0.9% NS INJECTION
     Route: 041
  15. 0.9% SODIUM CHLORIDE INJECTION [Suspect]
     Active Substance: SODIUM CHLORIDE
     Dosage: ABVD-PC REGIMEN 6TH COURSE, DAY 8, VINCRISTINE SULFATE INJECTION 1.4 MG + 0.9% NS
     Route: 042
     Dates: start: 20200129, end: 20200129
  16. SODIUM CHLORIDE. [Suspect]
     Active Substance: SODIUM CHLORIDE
     Indication: MEDICATION DILUTION
     Dosage: ABVD-PC REGIMEN 1ST TO 5TH COURSE, CYCLOPHOSPHAMIDE INJECTION + 0.9% NS INJECTION
     Route: 041
  17. SODIUM CHLORIDE. [Suspect]
     Active Substance: SODIUM CHLORIDE
     Dosage: ABVD-PC REGIMEN 6TH COURSE, ETOPOSIDE INJECTION 0.1 G + 0.9% NS INJECTION, DAY 1-3
     Route: 041
     Dates: start: 20200123, end: 20200125
  18. 0.9% SODIUM CHLORIDE INJECTION [Suspect]
     Active Substance: SODIUM CHLORIDE
     Dosage: ABVD-PC REGIMEN 6TH COURSE, DAY 1, VINCRISTINE SULFATE INJECTION 1.4 MG + 0.9% NS
     Route: 042
     Dates: start: 20200122, end: 20200122
  19. ETOPOSIDE. [Suspect]
     Active Substance: ETOPOSIDE
     Dosage: ABVD-PC REGIMEN 6TH COURSE, ETOPOSIDE INJECTION + 0.9% NS INJECTION 500 ML, DAY 1-3
     Route: 041
     Dates: start: 20200123, end: 20200125
  20. VINCRISTINE SULFATE. [Suspect]
     Active Substance: VINCRISTINE SULFATE
     Dosage: ABVD-PC REGIMEN 6TH COURSE, DAY 8, VINCRISTINE SULFATE INJECTION + 0.9% NS 10 ML
     Route: 042
     Dates: start: 20200129, end: 20200129
  21. SODIUM CHLORIDE. [Suspect]
     Active Substance: SODIUM CHLORIDE
     Indication: MEDICATION DILUTION
     Dosage: ABVD-PC REGIMEN 1ST TO 5TH COURSE, BLEOMYCIN HYDROCHLORIDE INJECTION + 0.9% NS INJECTION
     Route: 030
  22. SODIUM CHLORIDE. [Suspect]
     Active Substance: SODIUM CHLORIDE
     Dosage: ABVD-PC 6TH REGIMEN, BLEOMYCIN HYDROCHLORIDE INJECTION 15000 U +0.9% NS INJECTION, DAY 8
     Route: 030
     Dates: start: 20200129, end: 20200129
  23. SODIUM CHLORIDE. [Suspect]
     Active Substance: SODIUM CHLORIDE
     Dosage: ABVD-PC REGIMEN 6TH COURSE, CYCLOPHOSPHAMIDE INJECTION 630 MG + 0.9% NS INJECTION, DAY 1-2
     Route: 041
     Dates: start: 20200123, end: 20200124
  24. GLUCOSE [Suspect]
     Active Substance: DEXTROSE
     Dosage: ABVD-PC REGIMEN 6TH COURSE, PIRARUBICIN HYDROCHLORIDE INJECTION 26 MG + 5% GS INJECTION, DAY 1-2
     Route: 041
     Dates: start: 20200123, end: 20200124
  25. PIRARUBICIN HYDROCHLORIDE [Suspect]
     Active Substance: PIRARUBICIN HYDROCHLORIDE
     Dosage: ABVD-PC REGIMEN 6TH COURSE, PIRARUBICIN HYDROCHLORIDE INJECTION + 5% GS INJECTION 100 ML, DAY 1-2
     Route: 041
     Dates: start: 20200123, end: 20200124
  26. SODIUM CHLORIDE. [Suspect]
     Active Substance: SODIUM CHLORIDE
     Dosage: ABVD-PC 6TH REGIMEN, BLEOMYCIN HYDROCHLORIDE INJECTION 15000 U +0.9% NS INJECTION, DAY 1
     Route: 030
     Dates: start: 20200122, end: 20200122
  27. PREDNISONE. [Suspect]
     Active Substance: PREDNISONE
     Indication: HODGKIN^S DISEASE
     Dosage: TABLET, ABVD-PC REGIMEN 1ST TO 5TH COURSE
     Route: 065
  28. PREDNISONE. [Suspect]
     Active Substance: PREDNISONE
     Dosage: TABLET, ABVD-PC REGIMEN, 6TH COURSE, DAY 1 TO DAY 7
     Route: 065
     Dates: start: 20200122, end: 20200128
  29. PEG RECOMBINANT HUMAN GRANULOCYTE STIMULATING FACTOR [Concomitant]
     Indication: PROPHYLAXIS
     Route: 058
     Dates: start: 20200130

REACTIONS (1)
  - Bone marrow failure [Recovered/Resolved]

NARRATIVE: CASE EVENT DATE: 20200201
